FAERS Safety Report 12709835 (Version 1)
Quarter: 2016Q3

REPORT INFORMATION
  Report Type: Spontaneous
  Country: US (occurrence: US)
  Receive Date: 20160902
  Receipt Date: 20160902
  Transmission Date: 20161109
  Serious: Yes (Other)
  Sender: FDA-Public Use
  Company Number: None

PATIENT
  Age: 74 Year
  Sex: Male
  Weight: 121.11 kg

DRUGS (38)
  1. VYTONE 1% TOPICAL CREAM (HYDROCORTISONE-IODOQUINOL TOPICAL) [Concomitant]
  2. ALPROSTADIL (MUSE) [Concomitant]
  3. CLARITIN [Concomitant]
     Active Substance: LORATADINE
  4. LOSARTAN. [Concomitant]
     Active Substance: LOSARTAN
  5. PRAZOSIN [Concomitant]
     Active Substance: PRAZOSIN
  6. CELECOXIB. [Concomitant]
     Active Substance: CELECOXIB
  7. ALLUPURINOL [Concomitant]
  8. LASIX [Concomitant]
     Active Substance: FUROSEMIDE
  9. FIBER CON (POLYCARBOPHIL) [Concomitant]
  10. POTASSIUM CHLORIDE. [Concomitant]
     Active Substance: POTASSIUM CHLORIDE
  11. MELATONIN [Concomitant]
     Active Substance: MELATONIN
  12. TOOTH PASTE SODIUM FLUORIDE [Concomitant]
  13. NOVOLOG [Concomitant]
     Active Substance: INSULIN ASPART
  14. CLOPIDOGREL BISULFATE (PLAVIX) [Concomitant]
     Active Substance: CLOPIDOGREL BISULFATE
  15. SUMATRIPTAN. [Concomitant]
     Active Substance: SUMATRIPTAN
  16. COLCHICINE. [Concomitant]
     Active Substance: COLCHICINE
  17. TRIAMCINOLONE/VANICREAM TOPICAL CREAM (EMOLLIENTS, TOPICAL) [Concomitant]
  18. REFRESH OPHTHALMIC SOLUTION (OCULAR LUBRICANT) [Concomitant]
  19. CARBOXYMETHYLCELLULOSE [Concomitant]
     Active Substance: CARBOXYMETHYLCELLULOSE
  20. MICONAZOLE NITRATE. [Concomitant]
     Active Substance: MICONAZOLE NITRATE
  21. GLUCOSE TEST STRIP [Concomitant]
  22. VALACYCLOVIR [Concomitant]
     Active Substance: VALACYCLOVIR HYDROCHLORIDE
  23. ZANTAC [Concomitant]
     Active Substance: RANITIDINE HYDROCHLORIDE
  24. TUMS [Concomitant]
     Active Substance: CALCIUM CARBONATE
  25. NYSTATIN. [Concomitant]
     Active Substance: NYSTATIN
  26. CLONIDINE. [Concomitant]
     Active Substance: CLONIDINE
  27. INSULIN GLARGINE [Concomitant]
     Active Substance: INSULIN GLARGINE
  28. ACETAMINOPHEN. [Concomitant]
     Active Substance: ACETAMINOPHEN
  29. AMOXICILLIN. [Concomitant]
     Active Substance: AMOXICILLIN
  30. AMLODIPINE [Concomitant]
     Active Substance: AMLODIPINE BESYLATE
  31. PROBIOTIC [Concomitant]
     Active Substance: PROBIOTICS NOS
  32. CHOLECALCIFEROL (VITAMIN D 3) [Concomitant]
  33. GABAPENTIN. [Suspect]
     Active Substance: GABAPENTIN
  34. ALCOHOL PRE PADS [Concomitant]
  35. BUPROPION HCL 150MG 24 H OUR SA, 150 MG [Suspect]
     Active Substance: BUPROPION HYDROCHLORIDE
     Indication: DEPRESSION
     Dosage: 30 TABLET(S) IN THE MORNING TAKEN BY MOUTH
     Route: 048
     Dates: start: 20160819, end: 20160820
  36. FLUOXETINE HCL [Concomitant]
     Active Substance: FLUOXETINE HYDROCHLORIDE
  37. ASPIRIN. [Concomitant]
     Active Substance: ASPIRIN
  38. SIMVASTATIN. [Concomitant]
     Active Substance: SIMVASTATIN

REACTIONS (1)
  - Eczema [None]

NARRATIVE: CASE EVENT DATE: 20160820
